FAERS Safety Report 7736502-X (Version None)
Quarter: 2011Q3

REPORT INFORMATION
  Report Type: 
  Country: None (occurrence: None)
  Receive Date: 20110908
  Receipt Date: 20110825
  Transmission Date: 20111222
  Serious: Yes (Hospitalization)
  Sender: FDA-Public Use
  Company Number: DE-UCBSA-037154

PATIENT
  Sex: Female
  Weight: 98 kg

DRUGS (2)
  1. CERTOLIZUMAB PEGOL [Suspect]
     Indication: SPONDYLITIS
     Dosage: NO OF DOSES RECIVED: 8
     Route: 058
     Dates: start: 20110317, end: 20110708
  2. INDOMET RETARD [Concomitant]
     Indication: SPONDYLITIS
     Route: 048
     Dates: start: 20100723, end: 20110701

REACTIONS (1)
  - CHOLELITHIASIS [None]
